FAERS Safety Report 7842026-1 (Version None)
Quarter: 2011Q4

REPORT INFORMATION
  Report Type: 
  Country: None (occurrence: None)
  Receive Date: 20111019
  Receipt Date: 20111013
  Transmission Date: 20120403
  Serious: Yes (Hospitalization, Other)
  Sender: FDA-Public Use
  Company Number: 2011SP039074

PATIENT
  Age: 13 Year
  Sex: Male
  Weight: 64 kg

DRUGS (11)
  1. ROCURONIUM BROMIDE [Suspect]
     Indication: NEUROMUSCULAR BLOCKING THERAPY
     Dosage: 50 MG;IV ; 10 MG;IV ; 10 MG;IV ; 10 MG;IV ; 10 MG;IV
     Route: 042
     Dates: start: 20110808, end: 20110808
  2. ROCURONIUM BROMIDE [Suspect]
     Indication: NEUROMUSCULAR BLOCKING THERAPY
     Dosage: 50 MG;IV ; 10 MG;IV ; 10 MG;IV ; 10 MG;IV ; 10 MG;IV
     Route: 042
     Dates: start: 20110808, end: 20110808
  3. ROCURONIUM BROMIDE [Suspect]
     Indication: NEUROMUSCULAR BLOCKING THERAPY
     Dosage: 50 MG;IV ; 10 MG;IV ; 10 MG;IV ; 10 MG;IV ; 10 MG;IV
     Route: 042
     Dates: start: 20110808, end: 20110808
  4. ROCURONIUM BROMIDE [Suspect]
     Indication: NEUROMUSCULAR BLOCKING THERAPY
     Dosage: 50 MG;IV ; 10 MG;IV ; 10 MG;IV ; 10 MG;IV ; 10 MG;IV
     Route: 042
     Dates: start: 20110808, end: 20110808
  5. ROCURONIUM BROMIDE [Suspect]
     Indication: NEUROMUSCULAR BLOCKING THERAPY
     Dosage: 50 MG;IV ; 10 MG;IV ; 10 MG;IV ; 10 MG;IV ; 10 MG;IV
     Route: 042
     Dates: start: 20110808, end: 20110808
  6. LAUGHING GAS [Concomitant]
  7. FLURBIPROFEN [Concomitant]
  8. ATROPINE /00002802/ [Concomitant]
  9. ATARAX [Concomitant]
  10. SEVOFLURANE [Suspect]
     Indication: MAINTENANCE OF ANAESTHESIA
     Dosage: 100 ML;INH
     Route: 055
     Dates: start: 20110808, end: 20110808
  11. PROPOFOL [Concomitant]

REACTIONS (5)
  - ANAPHYLACTOID REACTION [None]
  - ENTEROBACTER INFECTION [None]
  - HYPERTHERMIA MALIGNANT [None]
  - TACHYCARDIA [None]
  - BLOOD PRESSURE INCREASED [None]
